FAERS Safety Report 8050167-1 (Version None)
Quarter: 2012Q1

REPORT INFORMATION
  Report Type: 
  Country: None (occurrence: None)
  Receive Date: 20120111
  Receipt Date: 20111228
  Transmission Date: 20120608
  Serious: Yes (Hospitalization, Disabling, Other)
  Sender: FDA-Public Use
  Company Number: 2008AL011791

PATIENT
  Age: 65 Year
  Sex: Female
  Weight: 68.9467 kg

DRUGS (15)
  1. CARTIA XT [Concomitant]
  2. CELEBREX [Concomitant]
  3. KEFLEX [Concomitant]
  4. ZANTAC [Concomitant]
  5. DIGOXIN [Suspect]
     Indication: HEART RATE IRREGULAR
     Dosage: 0.25 MG
     Dates: start: 20070201, end: 20070626
  6. SIMVASTATIN [Concomitant]
  7. AMLODIPINE [Concomitant]
  8. COUMADIN [Concomitant]
  9. METOPROLOL TARTRATE [Concomitant]
  10. NEXIUM [Concomitant]
  11. OMEPRAZOLE [Concomitant]
  12. RANITIDINE [Concomitant]
  13. MORPHINE [Concomitant]
  14. PERCOCET [Concomitant]
  15. METHADONE HCL [Concomitant]

REACTIONS (90)
  - HEART RATE DECREASED [None]
  - FACIAL PAIN [None]
  - HYPERHIDROSIS [None]
  - INCREASED TENDENCY TO BRUISE [None]
  - INTERVERTEBRAL DISC DEGENERATION [None]
  - MAGNESIUM METABOLISM DISORDER [None]
  - DILATATION VENTRICULAR [None]
  - BRADYARRHYTHMIA [None]
  - MYOCARDIAL INFARCTION [None]
  - PULMONARY CONGESTION [None]
  - WOUND [None]
  - DELIRIUM [None]
  - HEART VALVE INCOMPETENCE [None]
  - RETINAL VASCULAR OCCLUSION [None]
  - PRODUCT QUALITY ISSUE [None]
  - OSTEOARTHRITIS [None]
  - MENTAL STATUS CHANGES [None]
  - SINUS DISORDER [None]
  - HYPERLIPIDAEMIA [None]
  - DERMATITIS [None]
  - MITRAL VALVE INCOMPETENCE [None]
  - TRICUSPID VALVE INCOMPETENCE [None]
  - GAIT DISTURBANCE [None]
  - EATING DISORDER [None]
  - TOOTH LOSS [None]
  - BACK PAIN [None]
  - RETINAL HAEMORRHAGE [None]
  - SACROILIITIS [None]
  - COLOUR BLINDNESS [None]
  - JOINT SWELLING [None]
  - NEPHROSCLEROSIS [None]
  - ARTERIOSCLEROSIS [None]
  - NEURALGIA [None]
  - HYPOVOLAEMIA [None]
  - ARRHYTHMIA [None]
  - HYPOKALAEMIA [None]
  - KLEBSIELLA INFECTION [None]
  - DECREASED APPETITE [None]
  - CONDUCTION DISORDER [None]
  - BUNDLE BRANCH BLOCK RIGHT [None]
  - PULMONARY HYPERTENSION [None]
  - RETINAL VEIN OCCLUSION [None]
  - HYPOAESTHESIA [None]
  - ILL-DEFINED DISORDER [None]
  - MEMORY IMPAIRMENT [None]
  - POOR PERIPHERAL CIRCULATION [None]
  - MACULAR SCAR [None]
  - OSTEOPOROSIS [None]
  - ASTHENIA [None]
  - CARDIAC MURMUR [None]
  - GLAUCOMA [None]
  - COUGH [None]
  - MULTIPLE INJURIES [None]
  - DEPRESSION [None]
  - NERVOUSNESS [None]
  - URINARY TRACT INFECTION [None]
  - VENTRICULAR EXTRASYSTOLES [None]
  - PEDAL PULSE DECREASED [None]
  - LEFT VENTRICULAR HYPERTROPHY [None]
  - URINARY INCONTINENCE [None]
  - TOXICITY TO VARIOUS AGENTS [None]
  - ALOPECIA [None]
  - PNEUMONIA [None]
  - CONFUSIONAL STATE [None]
  - AORTIC VALVE DISEASE [None]
  - HYPOACUSIS [None]
  - INSOMNIA [None]
  - HYPERTENSION [None]
  - PUPILLARY DISORDER [None]
  - OEDEMA PERIPHERAL [None]
  - SINUSITIS [None]
  - OTITIS MEDIA CHRONIC [None]
  - ECONOMIC PROBLEM [None]
  - DIZZINESS [None]
  - DEAFNESS [None]
  - RENAL FAILURE [None]
  - CELLULITIS [None]
  - PEPTIC ULCER [None]
  - BLINDNESS UNILATERAL [None]
  - HEART RATE IRREGULAR [None]
  - VISION BLURRED [None]
  - SYMPATHETIC POSTERIOR CERVICAL SYNDROME [None]
  - MUSCULOSKELETAL PAIN [None]
  - VARICOSE VEIN [None]
  - BLISTER [None]
  - ATRIAL FIBRILLATION [None]
  - POLYURIA [None]
  - SUPRAVENTRICULAR EXTRASYSTOLES [None]
  - AORTIC STENOSIS [None]
  - MUSCLE SPASMS [None]
